FAERS Safety Report 6866219-5 (Version None)
Quarter: 2010Q3

REPORT INFORMATION
  Report Type: 
  Country: None (occurrence: None)
  Receive Date: 20100722
  Receipt Date: 20100706
  Transmission Date: 20110219
  Serious: No
  Sender: FDA-Public Use
  Company Number: US-JNJFOC-20100702235

PATIENT
  Age: 7 Decade
  Sex: Female

DRUGS (8)
  1. INVEGA SUSTENNA [Suspect]
     Indication: SCHIZOPHRENIA
     Route: 030
  2. INVEGA SUSTENNA [Suspect]
     Route: 030
  3. AMBIEN [Concomitant]
  4. KLONOPIN [Concomitant]
  5. ATENOLOL [Concomitant]
  6. AMLODIPINE [Concomitant]
  7. RANITIDINE [Concomitant]
  8. ASPIRIN [Concomitant]

REACTIONS (1)
  - DIZZINESS [None]
